FAERS Safety Report 18779349 (Version 1)
Quarter: 2021Q1

REPORT INFORMATION
  Report Type: Spontaneous
  Country: US (occurrence: US)
  Receive Date: 20210125
  Receipt Date: 20210125
  Transmission Date: 20210419
  Serious: Yes (Death)
  Sender: FDA-Public Use
  Company Number: US-SPECGX-T202002870

PATIENT
  Age: 3 Year
  Sex: Male

DRUGS (5)
  1. ARSENIC [Suspect]
     Active Substance: ARSENIC
     Indication: PRODUCT USED FOR UNKNOWN INDICATION
     Dosage: UNK
     Route: 048
  2. ONDANSETRON [Suspect]
     Active Substance: ONDANSETRON
     Indication: VOMITING
     Dosage: UNK
     Route: 065
  3. FENTANYL CITRATE. [Suspect]
     Active Substance: FENTANYL CITRATE
     Indication: PRODUCT USED FOR UNKNOWN INDICATION
     Dosage: UNK
     Route: 065
  4. SODIUM BICARBONATE. [Suspect]
     Active Substance: SODIUM BICARBONATE
     Indication: PRODUCT USED FOR UNKNOWN INDICATION
     Dosage: UNK
     Route: 065
  5. ACTIVATED CHARCOAL. [Suspect]
     Active Substance: ACTIVATED CHARCOAL
     Indication: METAL POISONING
     Dosage: UNK
     Route: 065

REACTIONS (5)
  - Metal poisoning [Fatal]
  - Arrhythmia [Fatal]
  - Product use issue [Unknown]
  - Vomiting [Fatal]
  - Metabolic acidosis [Fatal]

NARRATIVE: CASE EVENT DATE: 2019
